FAERS Safety Report 6977063-2 (Version None)
Quarter: 2010Q3

REPORT INFORMATION
  Report Type: 
  Country: None (occurrence: None)
  Receive Date: 20100910
  Receipt Date: 20100906
  Transmission Date: 20110219
  Serious: Yes (Hospitalization)
  Sender: FDA-Public Use
  Company Number: JP-SANOFI-AVENTIS-F01200900297

PATIENT
  Age: 75 Year
  Sex: Female
  Weight: 54 kg

DRUGS (21)
  1. CLOPIDOGREL BISULFATE [Suspect]
     Dosage: DOSE TEXT: STARTING DOSE
     Route: 048
     Dates: start: 20081220, end: 20081220
  2. CLOPIDOGREL BISULFATE [Suspect]
     Dosage: DOSE TEXT: MAINTENANCE DOSE
     Route: 048
     Dates: start: 20081221
  3. ASPIRIN [Concomitant]
     Route: 048
     Dates: start: 20081202, end: 20090120
  4. ASPIRIN [Concomitant]
     Route: 048
     Dates: start: 20090121
  5. TANATRIL ^TANABE^ [Concomitant]
     Route: 048
     Dates: start: 20081202
  6. DIART [Concomitant]
     Route: 048
     Dates: start: 20081202
  7. TAKEPRON [Concomitant]
     Route: 048
     Dates: start: 20081202
  8. DIGOSIN [Concomitant]
     Route: 048
     Dates: start: 20081204
  9. WARFARIN [Concomitant]
     Route: 048
     Dates: start: 20081205, end: 20081207
  10. WARFARIN [Concomitant]
     Route: 048
     Dates: start: 20081208
  11. EPLERENONE [Concomitant]
     Route: 048
     Dates: start: 20081206
  12. LIPOVAS ^BANYU^ [Concomitant]
     Route: 048
     Dates: start: 20090121
  13. HUMALOG [Concomitant]
     Dosage: DOSE:12 UNIT(S)
     Route: 058
     Dates: start: 20081218, end: 20081221
  14. HUMALOG [Concomitant]
     Dosage: DOSE:14 UNIT(S)
     Route: 058
     Dates: start: 20081222, end: 20081225
  15. HUMALOG [Concomitant]
     Dosage: DOSE:16 UNIT(S)
     Route: 058
     Dates: start: 20081226, end: 20090101
  16. HUMALOG [Concomitant]
     Dosage: DOSE:18 UNIT(S)
     Route: 058
     Dates: start: 20090122
  17. INSULIN DETEMIR [Concomitant]
     Route: 058
     Dates: start: 20081218, end: 20081221
  18. INSULIN DETEMIR [Concomitant]
     Route: 058
     Dates: start: 20081222, end: 20081225
  19. INSULIN DETEMIR [Concomitant]
     Route: 058
     Dates: start: 20081226, end: 20090121
  20. INSULIN DETEMIR [Concomitant]
     Route: 058
     Dates: start: 20090122, end: 20090128
  21. INSULIN DETEMIR [Concomitant]
     Route: 058
     Dates: start: 20090129

REACTIONS (1)
  - IN-STENT CORONARY ARTERY RESTENOSIS [None]
